FAERS Safety Report 4392323-X (Version None)
Quarter: 2004Q3

REPORT INFORMATION
  Report Type: 
  Country: None (occurrence: None)
  Receive Date: 20040702
  Receipt Date: 20040623
  Transmission Date: 20050211
  Serious: Yes (Death)
  Sender: FDA-Public Use
  Company Number: US-JNJFOC-20040404989

PATIENT
  Age: 75 Year
  Sex: Female
  Weight: 43.0917 kg

DRUGS (4)
  1. DURAGESIC [Suspect]
     Indication: PAIN
     Dosage: 125 UG/HR, 1 IN 72 HOUR, TRANSDERMAL
     Route: 062
  2. ANTICOAGULANT THERAPY (ANTICOAGULANT CITRATE DEXTROSE) [Concomitant]
  3. MORPHINE [Concomitant]
  4. ANTI-ANXIETY MEDICATION (ANXIOLYTICS) [Concomitant]

REACTIONS (10)
  - BLEEDING TIME PROLONGED [None]
  - BRAIN DAMAGE [None]
  - CEREBRAL HAEMORRHAGE [None]
  - COMA [None]
  - CONTUSION [None]
  - FALL [None]
  - MYDRIASIS [None]
  - SKIN LACERATION [None]
  - SKIN ULCER HAEMORRHAGE [None]
  - WEIGHT DECREASED [None]
